FAERS Safety Report 10232545 (Version 1)
Quarter: 2014Q2

REPORT INFORMATION
  Report Type: Not Available
  Country: US (occurrence: US)
  Receive Date: 20140612
  Receipt Date: 20140612
  Transmission Date: 20141212
  Serious: Yes (Other)
  Sender: FDA-Public Use
  Company Number: US-LUPIN PHARMACEUTICALS INC.-E2B_00002090

PATIENT
  Sex: Female
  Weight: 59 kg

DRUGS (11)
  1. SIMVASTATIN TABLETS USP 10 MG [Suspect]
     Indication: BLOOD CHOLESTEROL INCREASED
  2. NAVANE [Concomitant]
     Indication: ANXIETY
     Route: 065
  3. NAVANE [Concomitant]
     Route: 065
  4. HYDROCODONE [Concomitant]
     Indication: PAIN
     Route: 065
  5. HYDROCODONE [Concomitant]
     Route: 065
  6. FLEXERIL [Concomitant]
     Indication: HYPOTONIA
     Route: 065
  7. FLEXERIL [Concomitant]
     Route: 065
  8. VITAMIN D3 [Concomitant]
     Indication: PRODUCT USED FOR UNKNOWN INDICATION
     Route: 065
  9. VITAMIN D3 [Concomitant]
     Route: 065
  10. COGENTIN [Concomitant]
     Indication: NAUSEA
     Route: 065
  11. COGENTIN [Concomitant]
     Route: 065

REACTIONS (3)
  - Throat tightness [Not Recovered/Not Resolved]
  - Choking [Not Recovered/Not Resolved]
  - Dysphagia [Not Recovered/Not Resolved]
